FAERS Safety Report 11723802 (Version 1)
Quarter: 2015Q4

REPORT INFORMATION
  Report Type: Spontaneous
  Country: FI (occurrence: FI)
  Receive Date: 20151111
  Receipt Date: 20151111
  Transmission Date: 20160304
  Serious: Yes (Hospitalization, Disabling)
  Sender: FDA-Public Use
  Company Number: FI-MYLANLABS-2015M1038742

PATIENT

DRUGS (4)
  1. EPINEPHRINE. [Suspect]
     Active Substance: EPINEPHRINE
     Indication: PRODUCT USED FOR UNKNOWN INDICATION
     Dosage: CONTINUOUS INFUSION OF 0.15 MICROG/KG/MIN
     Route: 028
  2. EPINEPHRINE. [Suspect]
     Active Substance: EPINEPHRINE
     Dosage: TWO DOSES [DOSAGE NOT STATED]
     Route: 042
  3. EPINEPHRINE. [Suspect]
     Active Substance: EPINEPHRINE
     Dosage: UNK
     Route: 028
  4. NOREPINEPHRINE [Suspect]
     Active Substance: NOREPINEPHRINE\NOREPINEPHRINE BITARTRATE
     Indication: PRODUCT USED FOR UNKNOWN INDICATION
     Dosage: CONTINUOUS INFUSION OF 0.1 MICROG/KG/MIN
     Route: 028

REACTIONS (1)
  - Compartment syndrome [Recovered/Resolved with Sequelae]
